FAERS Safety Report 23508529 (Version 1)
Quarter: 2024Q1

REPORT INFORMATION
  Report Type: Spontaneous
  Country: US (occurrence: US)
  Receive Date: 20240209
  Receipt Date: 20240209
  Transmission Date: 20240410
  Serious: No
  Sender: FDA-Public Use
  Company Number: US-KYOWAKIRIN-2024KK002092

PATIENT

DRUGS (2)
  1. CRYSVITA [Suspect]
     Active Substance: BUROSUMAB-TWZA
     Indication: Hereditary hypophosphataemic rickets
     Dosage: INJECT 60 MG SUBCUTANEOUSLY EVERY 4 WEEKS ALONG WITH 10 MG VIAL FOR A TOTAL DOSE OF 70 MG EVERY 4 WE
     Route: 058
     Dates: start: 201904
  2. CRYSVITA [Suspect]
     Active Substance: BUROSUMAB-TWZA
     Indication: Hereditary hypophosphataemic rickets
     Dosage: INJECT 60 MG SUBCUTANEOUSLY EVERY 4 WEEKS ALONG WITH 10 MG VIAL FOR A TOTAL DOSE OF 70 MG EVERY 4 WE
     Route: 058
     Dates: start: 201904

REACTIONS (2)
  - Diplopia [Unknown]
  - Depression [Unknown]
